FAERS Safety Report 7757829-1 (Version None)
Quarter: 2011Q3

REPORT INFORMATION
  Report Type: 
  Country: None (occurrence: None)
  Receive Date: 20110918
  Receipt Date: 20110624
  Transmission Date: 20111222
  Serious: Yes (Death)
  Sender: FDA-Public Use
  Company Number: PHHY2011DE47308

PATIENT
  Sex: Female
  Weight: 105 kg

DRUGS (4)
  1. METOPROLOL TARTRATE [Concomitant]
     Dosage: 200 MG/D
     Route: 048
     Dates: start: 20070101
  2. TORSEMIDE [Concomitant]
     Dosage: 15 MG/D
     Route: 048
     Dates: start: 20070101
  3. RASILEZ [Suspect]
     Indication: HYPERTENSION
     Dosage: 300 MG/D
     Route: 048
     Dates: start: 20090330, end: 20100323
  4. RAMIPRIL [Concomitant]
     Dosage: 5 MG/D
     Route: 048
     Dates: start: 20060101

REACTIONS (1)
  - MYOCARDIAL INFARCTION [None]
